FAERS Safety Report 9153847 (Version 1)
Quarter: 2013Q1

REPORT INFORMATION
  Report Type: Spontaneous
  Country: IL (occurrence: IL)
  Receive Date: 20130311
  Receipt Date: 20130311
  Transmission Date: 20140127
  Serious: Yes (Other)
  Sender: FDA-Public Use
  Company Number: IL-MERCK-1303ISR003581

PATIENT
  Age: 63 Year
  Sex: Female

DRUGS (3)
  1. JANUET [Suspect]
     Indication: DIABETES MELLITUS
     Dosage: UNK
     Route: 048
     Dates: start: 2012, end: 2012
  2. JANUET [Suspect]
     Dosage: UNK
     Route: 048
     Dates: start: 2012, end: 2012
  3. LIPITOR [Concomitant]

REACTIONS (2)
  - Hepatic failure [Recovering/Resolving]
  - Rash [Recovered/Resolved]
